FAERS Safety Report 6965321-7 (Version None)
Quarter: 2010Q3

REPORT INFORMATION
  Report Type: 
  Country: None (occurrence: None)
  Receive Date: 20100903
  Receipt Date: 20100824
  Transmission Date: 20110219
  Serious: Yes (Other)
  Sender: FDA-Public Use
  Company Number: US-JNJFOC-20100808008

PATIENT
  Sex: Female
  Weight: 90.72 kg

DRUGS (14)
  1. REMICADE [Suspect]
     Indication: RHEUMATOID ARTHRITIS
     Route: 042
  2. REMICADE [Suspect]
     Route: 042
  3. LEXAPRO [Concomitant]
  4. METHOTREXATE [Concomitant]
  5. PREDNISONE [Concomitant]
  6. MINOCYCLINE HCL [Concomitant]
  7. NEURONTIN [Concomitant]
  8. REPLIVA [Concomitant]
  9. SUCRALFATE [Concomitant]
  10. OMEPRAZOLE [Concomitant]
  11. CARVEDILOL [Concomitant]
  12. ASPIRIN [Concomitant]
  13. ZETIA [Concomitant]
  14. BENICAR HCT [Concomitant]

REACTIONS (5)
  - CHEST PAIN [None]
  - EAR PAIN [None]
  - NASAL OEDEMA [None]
  - SYSTEMIC LUPUS ERYTHEMATOSUS [None]
  - TOOTHACHE [None]
